FAERS Safety Report 6291508-5 (Version None)
Quarter: 2009Q3

REPORT INFORMATION
  Report Type: 
  Country: None (occurrence: None)
  Receive Date: 20090730
  Receipt Date: 20090724
  Transmission Date: 20100115
  Serious: Yes (Hospitalization)
  Sender: FDA-Public Use
  Company Number: US-SANOFI-SYNTHELABO-F01200900618

PATIENT
  Sex: Male

DRUGS (7)
  1. DIOVAN [Concomitant]
  2. SIMVASTATIN [Concomitant]
  3. GLYBURIDE [Concomitant]
  4. NORVASC [Concomitant]
  5. BEVACIZUMAB [Suspect]
     Dosage: 5 MG/KG
     Route: 042
     Dates: start: 20090611, end: 20090611
  6. XELODA [Suspect]
     Dosage: 750 MG/M2
     Route: 048
     Dates: start: 20090611, end: 20090611
  7. OXALIPLATIN [Suspect]
     Indication: COLORECTAL CANCER METASTATIC
     Dosage: 85 MG/M2
     Route: 041
     Dates: start: 20090611, end: 20090611

REACTIONS (4)
  - ATELECTASIS [None]
  - BLOOD BILIRUBIN INCREASED [None]
  - NAUSEA [None]
  - VOMITING [None]
